FAERS Safety Report 5846204-2 (Version None)
Quarter: 2008Q3

REPORT INFORMATION
  Report Type: 
  Country: None (occurrence: None)
  Receive Date: 20080813
  Receipt Date: 20080730
  Transmission Date: 20090109
  Serious: No
  Sender: FDA-Public Use
  Company Number: A-NJ2008-21373

PATIENT
  Age: 76 Year
  Sex: Female
  Weight: 83 kg

DRUGS (16)
  1. TRACLEER [Suspect]
     Indication: PULMONARY HYPERTENSION
     Dosage: 125 MG, BID, ORAL, 62.5 MG, BID, ORAL
     Route: 048
     Dates: start: 20080624, end: 20080723
  2. TRACLEER [Suspect]
     Indication: PULMONARY HYPERTENSION
     Dosage: 125 MG, BID, ORAL, 62.5 MG, BID, ORAL
     Route: 048
     Dates: start: 20080724
  3. ALBUTEROL     (SALBUTAMOL SULFATE) [Concomitant]
  4. AZOPT [Concomitant]
  5. BUSPAR [Concomitant]
  6. CADUET (ATORVASTATIN CALCIUM, AMLODIPINE BESILATE) [Concomitant]
  7. HYZAAR (HYDROCHLOROTHIAZIDE, LOSARTAN) [Concomitant]
  8. IMURAN [Concomitant]
  9. KLOR-CON [Concomitant]
  10. LASIX [Concomitant]
  11. PREDNISOLONE ACETATE [Concomitant]
  12. PREMARIN [Concomitant]
  13. PRILOSEC [Concomitant]
  14. PROZAC [Concomitant]
  15. SPIRIVA [Concomitant]
  16. XALATAN [Concomitant]

REACTIONS (2)
  - ATRIAL FIBRILLATION [None]
  - TACHYCARDIA [None]
